FAERS Safety Report 5378087-1 (Version None)
Quarter: 2007Q3

REPORT INFORMATION
  Report Type: 
  Country: None (occurrence: None)
  Receive Date: 20070702
  Receipt Date: 20070702
  Transmission Date: 20080115
  Serious: Yes (Hospitalization)
  Sender: FDA-Public Use
  Company Number: None

PATIENT
  Sex: Male
  Weight: 106 kg

DRUGS (11)
  1. CAMPATH [Suspect]
  2. ACTOPLUS [Concomitant]
  3. ALLOPURINOL [Concomitant]
  4. ATORVASTATIN [Concomitant]
  5. LASIX [Concomitant]
  6. ZOFRAN [Concomitant]
  7. CIPRO [Concomitant]
  8. NEULASTA [Concomitant]
  9. PREDNISONE [Concomitant]
  10. VALTREX [Concomitant]
  11. COREG [Concomitant]

REACTIONS (1)
  - FEBRILE NEUTROPENIA [None]
